FAERS Safety Report 24658825 (Version 4)
Quarter: 2025Q2

REPORT INFORMATION
  Report Type: Spontaneous
  Country: FR (occurrence: FR)
  Receive Date: 20241125
  Receipt Date: 20250523
  Transmission Date: 20250716
  Serious: Yes (Death, Life-Threatening, Other)
  Sender: Kenvue
  Company Number: None

PATIENT

DRUGS (14)
  1. LOPERAMIDE HYDROCHLORIDE [Suspect]
     Active Substance: LOPERAMIDE HYDROCHLORIDE
     Indication: Diarrhoea
     Route: 048
     Dates: end: 202410
  2. KARDEGIC [Suspect]
     Active Substance: ASPIRIN DL-LYSINE
     Indication: Cardiovascular event prophylaxis
     Dosage: POWDER FOR ORAL SOLUTION IN SACHET-DOSE, STRENGTH  75 MG
     Route: 048
     Dates: end: 202410
  3. SERETIDE [Suspect]
     Active Substance: FLUTICASONE PROPIONATE\SALMETEROL XINAFOATE
     Indication: Chronic obstructive pulmonary disease
     Dosage: 2 DOSAGE FORM, ONCE A DAY, MICROGRAMS/DOSE, POWDER FOR INHALATION IN SINGLE-DOSE CONTAINER
  4. CANDESARTAN CILEXETIL [Suspect]
     Active Substance: CANDESARTAN CILEXETIL
     Indication: Hypertension
     Dosage: 16 MILLIGRAM, ONCE A DAY
     Route: 048
     Dates: end: 202410
  5. HYDROCHLOROTHIAZIDE [Suspect]
     Active Substance: HYDROCHLOROTHIAZIDE
     Indication: Hypertension
     Dosage: 12.5 MILLIGRAM, ONCE A DAY
     Route: 048
     Dates: end: 202410
  6. ACETAMINOPHEN [Suspect]
     Active Substance: ACETAMINOPHEN
     Indication: Pain
     Route: 048
  7. RILMENIDINE [Suspect]
     Active Substance: RILMENIDINE
     Indication: Hypertension
     Dosage: 2 MILLIGRAM, ONCE A DAY
     Route: 048
     Dates: end: 202410
  8. IBUPROFEN [Suspect]
     Active Substance: IBUPROFEN
     Indication: Pain
     Dosage: 3 DOSAGE FORM, ONCE A DAY
     Route: 003
     Dates: end: 202410
  9. ESOMEPRAZOLE [Suspect]
     Active Substance: ESOMEPRAZOLE
     Indication: Prophylaxis against gastrointestinal ulcer
     Route: 048
     Dates: end: 202410
  10. HERBALS\SAW PALMETTO [Suspect]
     Active Substance: HERBALS\SAW PALMETTO
     Indication: Prostate cancer
     Dosage: 2 DOSAGE FORM, ONCE A DAY
     Route: 048
  11. METOCLOPRAMIDE [Suspect]
     Active Substance: METOCLOPRAMIDE
     Indication: Nausea
     Route: 048
     Dates: end: 202410
  12. CHOLECALCIFEROL [Suspect]
     Active Substance: CHOLECALCIFEROL
     Indication: Vitamin supplementation
     Dosage: DRINKABLE SOLUTION IN AMPOULE, 800 IU
     Route: 048
  13. TAMSULOSIN HYDROCHLORIDE [Suspect]
     Active Substance: TAMSULOSIN HYDROCHLORIDE
     Indication: Prostate cancer
     Dosage: 0.4 MILLIGRAM, ONCE A DAY
     Route: 048
  14. MONTMORILLONITE [Suspect]
     Active Substance: MONTMORILLONITE
     Indication: Diarrhoea
     Route: 048
     Dates: end: 202410

REACTIONS (2)
  - Peptic ulcer [Fatal]
  - Acquired haemophilia [Recovering/Resolving]

NARRATIVE: CASE EVENT DATE: 20240930
